FAERS Safety Report 7369880-4 (Version None)
Quarter: 2011Q1

REPORT INFORMATION
  Report Type: 
  Country: None (occurrence: None)
  Receive Date: 20110323
  Receipt Date: 20110104
  Transmission Date: 20110831
  Serious: Yes (Hospitalization)
  Sender: FDA-Public Use
  Company Number: US-BAYER-201026444NA

PATIENT
  Sex: Female
  Weight: 67 kg

DRUGS (4)
  1. YAZ [Suspect]
     Indication: ACNE
     Route: 048
     Dates: start: 20040301
  2. FLONASE [Concomitant]
     Dosage: UNK UNK, BID
     Route: 045
  3. YASMIN [Suspect]
     Indication: ACNE
     Dosage: UNK
     Route: 048
     Dates: start: 20040301, end: 20040801
  4. LORATADINE [Concomitant]

REACTIONS (2)
  - STRESS [None]
  - PULMONARY EMBOLISM [None]
